FAERS Safety Report 16691129 (Version 4)
Quarter: 2020Q3

REPORT INFORMATION
  Report Type: Report from Study
  Country: None (occurrence: NL)
  Receive Date: 20190812
  Receipt Date: 20200810
  Transmission Date: 20201102
  Serious: Yes (Other)
  Sender: FDA-Public Use
  Company Number: NL-ABBVIE-19S-114-2755604-00

PATIENT
  Sex: Female
  Weight: 63 kg

DRUGS (10)
  1. DUODOPA [Suspect]
     Active Substance: CARBIDOPA\LEVODOPA
     Dosage: CD 1.9?MD 2.0 ML (NOT BEEN USED DUE TO COUNTERPRODUCTIVE EFFECT); CD 2.1 ML/HR; ED 2.0 ML
     Route: 050
  2. DUODOPA [Suspect]
     Active Substance: CARBIDOPA\LEVODOPA
     Dosage: MD 1.5, CD 2.5
     Route: 050
  3. DUODOPA [Suspect]
     Active Substance: CARBIDOPA\LEVODOPA
     Dosage: CD DECREASED TO 2.4
     Route: 050
  4. DUODOPA [Suspect]
     Active Substance: CARBIDOPA\LEVODOPA
     Indication: PARKINSON^S DISEASE
     Dosage: MD: 3.0, CD: 2.8, ED: 1.0 16 HOUR ADMINISTRATION
     Route: 050
  5. DUODOPA [Suspect]
     Active Substance: CARBIDOPA\LEVODOPA
     Dosage: MD: 2.0, CD: 1.7, ED: 1.6
     Route: 050
  6. SIFROL [Concomitant]
     Active Substance: PRAMIPEXOLE
     Indication: PRODUCT USED FOR UNKNOWN INDICATION
     Dosage: DOSE INCREASED
  7. FRESUBIN [Concomitant]
     Active Substance: AMINO ACIDS\DEXTROSE\ELECTROLYTES NOS\SOYBEAN OIL\VITAMINS
     Indication: PRODUCT USED FOR UNKNOWN INDICATION
     Dosage: DOSE INCREASED
  8. DUODOPA [Suspect]
     Active Substance: CARBIDOPA\LEVODOPA
     Dosage: CD 2.3
     Route: 050
  9. DUODOPA [Suspect]
     Active Substance: CARBIDOPA\LEVODOPA
     Dosage: CD 2.1
     Route: 050
  10. DUODOPA [Suspect]
     Active Substance: CARBIDOPA\LEVODOPA
     Dosage: MD: 2.1, CD: 1.9, ED: 1.6
     Route: 050

REACTIONS (56)
  - Tension [Not Recovered/Not Resolved]
  - Inappropriate schedule of product administration [Recovered/Resolved]
  - Muscle spasms [Not Recovered/Not Resolved]
  - Hyperkinesia [Not Recovered/Not Resolved]
  - Fibroma [Recovering/Resolving]
  - Stoma site discharge [Recovered/Resolved]
  - Stoma site haemorrhage [Recovered/Resolved]
  - Device dislocation [Unknown]
  - Depressed level of consciousness [Not Recovered/Not Resolved]
  - Gastrointestinal disorder [Recovered/Resolved]
  - Dyskinesia [Recovered/Resolved]
  - Constipation [Recovered/Resolved]
  - Therapeutic product effect variable [Recovered/Resolved]
  - Stoma site extravasation [Not Recovered/Not Resolved]
  - Stoma site pain [Not Recovered/Not Resolved]
  - Musculoskeletal stiffness [Not Recovered/Not Resolved]
  - Fibroma [Recovered/Resolved]
  - Impaired quality of life [Not Recovered/Not Resolved]
  - Nervousness [Not Recovered/Not Resolved]
  - Agitation [Unknown]
  - Hyperkinesia [Recovered/Resolved]
  - Abdominal pain [Not Recovered/Not Resolved]
  - Device occlusion [Unknown]
  - Device kink [Unknown]
  - Therapeutic product effect incomplete [Unknown]
  - Emotional disorder [Not Recovered/Not Resolved]
  - Faeces soft [Recovered/Resolved]
  - Tension [Recovered/Resolved]
  - Gait disturbance [Recovering/Resolving]
  - Dystonia [Not Recovered/Not Resolved]
  - Overdose [Recovered/Resolved]
  - Nausea [Not Recovered/Not Resolved]
  - On and off phenomenon [Not Recovered/Not Resolved]
  - Bradykinesia [Not Recovered/Not Resolved]
  - Speech disorder [Not Recovered/Not Resolved]
  - Medical device site fistula [Not Recovered/Not Resolved]
  - Adverse drug reaction [Unknown]
  - Dyskinesia [Not Recovered/Not Resolved]
  - Stoma site discharge [Not Recovered/Not Resolved]
  - Screaming [Not Recovered/Not Resolved]
  - Stress [Not Recovered/Not Resolved]
  - Frustration tolerance decreased [Not Recovered/Not Resolved]
  - Feeling of despair [Not Recovered/Not Resolved]
  - Abnormal faeces [Recovered/Resolved]
  - Asthenia [Not Recovered/Not Resolved]
  - Weight decreased [Recovering/Resolving]
  - Muscle rigidity [Not Recovered/Not Resolved]
  - Hallucination [Recovered/Resolved]
  - Freezing phenomenon [Not Recovered/Not Resolved]
  - Stoma site pain [Recovered/Resolved]
  - Acquired claw toe [Not Recovered/Not Resolved]
  - Loss of personal independence in daily activities [Not Recovered/Not Resolved]
  - Underdose [Recovered/Resolved]
  - Fall [Not Recovered/Not Resolved]
  - Abnormal dreams [Not Recovered/Not Resolved]
  - Vomiting [Not Recovered/Not Resolved]

NARRATIVE: CASE EVENT DATE: 2020
